FAERS Safety Report 12649189 (Version 1)
Quarter: 2016Q3

REPORT INFORMATION
  Report Type: Spontaneous
  Country: US (occurrence: US)
  Receive Date: 20160812
  Receipt Date: 20160812
  Transmission Date: 20161109
  Serious: No
  Sender: FDA-Public Use
  Company Number: US-SHIRE-US201609438

PATIENT
  Age: 7 Year
  Sex: Male
  Weight: 27.21 kg

DRUGS (2)
  1. VYVANSE [Suspect]
     Active Substance: LISDEXAMFETAMINE DIMESYLATE
     Indication: ATTENTION DEFICIT/HYPERACTIVITY DISORDER
     Dosage: 10 MG, 1X/DAY:QD
     Route: 048
     Dates: start: 20160718, end: 20160719
  2. VYVANSE [Suspect]
     Active Substance: LISDEXAMFETAMINE DIMESYLATE
     Indication: IMPULSIVE BEHAVIOUR
     Dosage: 20 MG, 1X/DAY:QD
     Route: 048
     Dates: start: 20160720, end: 20160720

REACTIONS (5)
  - Somnolence [Recovered/Resolved]
  - Aggression [Recovered/Resolved]
  - Impulsive behaviour [Recovered/Resolved]
  - Screaming [Recovered/Resolved]
  - Educational problem [Not Recovered/Not Resolved]

NARRATIVE: CASE EVENT DATE: 201607
